FAERS Safety Report 4632936-0 (Version None)
Quarter: 2005Q2

REPORT INFORMATION
  Report Type: 
  Country: None (occurrence: None)
  Receive Date: 20050412
  Receipt Date: 20050328
  Transmission Date: 20051028
  Serious: Yes (Life-Threatening, Disabling)
  Sender: FDA-Public Use
  Company Number: US-MERCK-0503USA04835

PATIENT
  Age: 65 Year
  Sex: Female

DRUGS (1)
  1. INVANZ [Suspect]
     Route: 051
     Dates: end: 20050101

REACTIONS (1)
  - METABOLIC ENCEPHALOPATHY [None]
